FAERS Safety Report 7996145-X (Version None)
Quarter: 2011Q4

REPORT INFORMATION
  Report Type: 
  Country: None (occurrence: None)
  Receive Date: 20111220
  Receipt Date: 20111214
  Transmission Date: 20120403
  Serious: Yes (Hospitalization, Other)
  Sender: FDA-Public Use
  Company Number: PHHY2011VE110028

PATIENT
  Sex: Female

DRUGS (5)
  1. LIBRAX [Concomitant]
     Indication: ABDOMINAL PAIN
     Dosage: 1 DF (5 / 2.5MG), QD
  2. TRIMEBUTINE MALEATE [Concomitant]
     Dosage: 300 MG, BID
  3. ZOLEDRONOC ACID [Suspect]
     Indication: OSTEOPOROSIS
     Dosage: 5 MG, UNK
     Route: 042
     Dates: start: 20110701
  4. ASPIRIN [Concomitant]
     Dosage: 100 MG, QD
  5. UNASYN [Concomitant]
     Dosage: UNK UKN, UNK

REACTIONS (2)
  - DIVERTICULUM [None]
  - COLON ADENOMA [None]
